FAERS Safety Report 8002573-9 (Version None)
Quarter: 2011Q4

REPORT INFORMATION
  Report Type: 
  Country: None (occurrence: None)
  Receive Date: 20111222
  Receipt Date: 20111221
  Transmission Date: 20120403
  Serious: Yes (Life-Threatening, Hospitalization, Disabling, Other)
  Sender: FDA-Public Use
  Company Number: FR-ABBOTT-11P-056-0885341-00

PATIENT
  Sex: Male
  Weight: 65 kg

DRUGS (4)
  1. AUGMENTIN [Suspect]
     Indication: PRODUCT USED FOR UNKNOWN INDICATION
     Route: 048
     Dates: start: 19980111, end: 19980121
  2. CLARITHROMYCIN [Suspect]
     Indication: HELICOBACTER INFECTION
     Route: 048
     Dates: start: 19980120, end: 19980130
  3. AMOXICILLIN TRIHYDRATE [Suspect]
     Indication: HELICOBACTER INFECTION
     Route: 048
     Dates: start: 19980120, end: 19980130
  4. OMEPRAZOLE [Concomitant]
     Indication: HELICOBACTER INFECTION
     Dates: start: 19980120, end: 19980130

REACTIONS (17)
  - HEPATIC STEATOSIS [None]
  - PORTAL HYPERTENSION [None]
  - TRANSAMINASES INCREASED [None]
  - HEPATIC FIBROSIS [None]
  - HEPATIC NECROSIS [None]
  - PROTHROMBIN LEVEL DECREASED [None]
  - GRANULOMATOUS LIVER DISEASE [None]
  - HEPATIC CIRRHOSIS [None]
  - ASCITES [None]
  - BIOPSY LIVER ABNORMAL [None]
  - LIVER TRANSPLANT [None]
  - PORTAL VEIN THROMBOSIS [None]
  - HEPATITIS FULMINANT [None]
  - BLOOD BILIRUBIN INCREASED [None]
  - VENOUS RECANALISATION [None]
  - SPLENOMEGALY [None]
  - HEPATIC INFILTRATION EOSINOPHILIC [None]
